FAERS Safety Report 8289118-3 (Version None)
Quarter: 2012Q2

REPORT INFORMATION
  Report Type: 
  Country: None (occurrence: None)
  Receive Date: 20120417
  Receipt Date: 20120411
  Transmission Date: 20120825
  Serious: Yes (Hospitalization, Other)
  Sender: FDA-Public Use
  Company Number: DE-AMGEN-DEUSP2012017984

PATIENT
  Age: 37 Year
  Sex: Male

DRUGS (6)
  1. NEULASTA [Suspect]
     Indication: PROPHYLAXIS
     Dosage: 6 MG, UNK
     Route: 058
     Dates: start: 20120305
  2. VOLTAREN [Concomitant]
     Indication: PAIN
     Dosage: 75 MG, BID
     Route: 048
  3. PANTOPRAZOLE [Concomitant]
     Indication: PROPHYLAXIS
     Dosage: 40 MG, UNK
     Route: 048
  4. IFOSFAMIDE [Concomitant]
     Indication: GERM CELL CANCER METASTATIC
     Dosage: 2800 MG, UNK
     Route: 042
     Dates: start: 20120203, end: 20120323
  5. ETOPOSIDE [Concomitant]
     Indication: GERM CELL CANCER METASTATIC
     Dosage: 186 MG, UNK
     Route: 042
     Dates: start: 20120203, end: 20120323
  6. CISPLATIN [Concomitant]
     Indication: GERM CELL CANCER METASTATIC
     Dosage: 37 MG, UNK
     Route: 042
     Dates: start: 20120203, end: 20120323

REACTIONS (1)
  - LEUKAEMOID REACTION [None]
